FAERS Safety Report 18054160 (Version 1)
Quarter: 2020Q3

REPORT INFORMATION
  Report Type: Spontaneous
  Country: US (occurrence: US)
  Receive Date: 20200721
  Receipt Date: 20200721
  Transmission Date: 20201103
  Serious: No
  Sender: FDA-Public Use
  Company Number: None

PATIENT

DRUGS (1)
  1. HEPARIN [Suspect]
     Active Substance: HEPARIN SODIUM
     Indication: CARDIAC OPERATION
     Dosage: ?          OTHER FREQUENCY:ONCE;?
     Dates: start: 20200720, end: 20200720

REACTIONS (3)
  - Therapeutic product effect decreased [None]
  - Product substitution issue [None]
  - Coagulation time shortened [None]

NARRATIVE: CASE EVENT DATE: 20200720
